FAERS Safety Report 6156257-2 (Version None)
Quarter: 2009Q2

REPORT INFORMATION
  Report Type: 
  Country: None (occurrence: None)
  Receive Date: 20090415
  Receipt Date: 20090406
  Transmission Date: 20091009
  Serious: Yes (Hospitalization)
  Sender: FDA-Public Use
  Company Number: US-ABBOTT-09P-163-0497620-00

PATIENT
  Sex: Female

DRUGS (5)
  1. HUMIRA [Suspect]
     Indication: CROHN'S DISEASE
     Route: 058
  2. IMURAN [Concomitant]
     Indication: CROHN'S DISEASE
     Dates: start: 20071001
  3. ZEGERID [Concomitant]
     Indication: GASTROOESOPHAGEAL REFLUX DISEASE
     Dosage: 40-1100 MG
     Dates: start: 20070817
  4. HUMIRA [Concomitant]
     Dates: start: 20070430
  5. MULTI-VITAMIN [Concomitant]
     Indication: MEDICAL DIET
     Dates: start: 20070430

REACTIONS (4)
  - DEHYDRATION [None]
  - DIARRHOEA [None]
  - PNEUMONIA [None]
  - PYREXIA [None]
